FAERS Safety Report 9816344 (Version 3)
Quarter: 2014Q1

REPORT INFORMATION
  Report Type: Report from Study
  Country: CA (occurrence: CA)
  Receive Date: 20140114
  Receipt Date: 20140116
  Transmission Date: 20141002
  Serious: Yes (Death, Other)
  Sender: FDA-Public Use
  Company Number: PHHY2012CA027304

PATIENT
  Age: 64 Year
  Sex: Female

DRUGS (5)
  1. ACLASTA [Suspect]
     Indication: OSTEOPOROSIS
     Dosage: YEARLY
     Route: 042
     Dates: start: 20110408
  2. ACLASTA [Suspect]
     Dosage: YEARLY
     Route: 042
     Dates: start: 20120403
  3. ACLASTA [Suspect]
     Dosage: YEARLY
     Route: 042
     Dates: start: 20130410
  4. VITAMIN D [Concomitant]
     Dosage: UNK UKN, UNK
  5. CALCIUM [Concomitant]
     Dosage: UNK UKN, UNK

REACTIONS (21)
  - Ovarian cancer stage IV [Fatal]
  - Pain [Fatal]
  - Abdominal distension [Fatal]
  - Nausea [Fatal]
  - Ascites [Fatal]
  - Pelvic mass [Fatal]
  - Discomfort [Fatal]
  - Lymphadenopathy [Fatal]
  - Hepatic mass [Fatal]
  - Weight decreased [Fatal]
  - Functional gastrointestinal disorder [Fatal]
  - Adenocarcinoma [Fatal]
  - Soft tissue mass [Fatal]
  - Hepatic cyst [Fatal]
  - Metastases to gastrointestinal tract [Unknown]
  - Metastases to peritoneum [Unknown]
  - Metastases to pelvis [Unknown]
  - Hiatus hernia [Unknown]
  - Scoliosis [Unknown]
  - Bone pain [Unknown]
  - Insomnia [Unknown]
